FAERS Safety Report 10711453 (Version 7)
Quarter: 2015Q1

REPORT INFORMATION
  Report Type: Spontaneous
  Country: DE (occurrence: DE)
  Receive Date: 20150114
  Receipt Date: 20150326
  Transmission Date: 20150721
  Serious: Yes (Life-Threatening, Hospitalization, Other)
  Sender: FDA-Public Use
  Company Number: DE-PFIZER INC-2015010224

PATIENT
  Age: 36 Year
  Sex: Female
  Weight: 58 kg

DRUGS (15)
  1. VOLTAREN RESINAT [Suspect]
     Active Substance: DICLOFENAC
     Indication: PAIN
     Dosage: 1 DF, 3X/DAY, 1-1-1
     Route: 048
     Dates: start: 20130205, end: 20130224
  2. LYRICA [Suspect]
     Active Substance: PREGABALIN
     Dosage: 50 MG, 1X/DAY, IN THE EVENING
     Route: 048
     Dates: end: 20130224
  3. VOLTAREN RESINAT [Suspect]
     Active Substance: DICLOFENAC
     Indication: ARTHROSCOPY
  4. NOVALGIN [Suspect]
     Active Substance: METAMIZOLE SODIUM
     Indication: ARTHROSCOPY
  5. LYRICA [Suspect]
     Active Substance: PREGABALIN
     Dosage: 50 MG, 2X/DAY
     Route: 048
     Dates: start: 2012
  6. PANTOZOL [Suspect]
     Active Substance: PANTOPRAZOLE SODIUM
     Dosage: 40 MG, 1X/DAY, 0-0-1
     Route: 048
  7. XARELTO [Suspect]
     Active Substance: RIVAROXABAN
     Indication: THROMBOSIS PROPHYLAXIS
     Dosage: 15 MG, UNK
     Route: 048
     Dates: start: 20130204, end: 20130214
  8. XARELTO [Suspect]
     Active Substance: RIVAROXABAN
     Indication: ARTHROSCOPY
  9. NOVALGIN [Suspect]
     Active Substance: METAMIZOLE SODIUM
     Indication: PAIN
     Dosage: 1 G, 4X/DAY, 1-1-1-1
     Route: 048
  10. MCP-CT [Suspect]
     Active Substance: METOCLOPRAMIDE
     Indication: NAUSEA
     Dosage: 4 MG, UNK
     Dates: start: 20130214, end: 20130224
  11. LYRICA [Suspect]
     Active Substance: PREGABALIN
     Indication: ANXIETY DISORDER
     Dosage: 50 MG, 1X/DAY, IN THE EVENING
     Route: 048
     Dates: start: 201204
  12. BROMELAIN-POS [Suspect]
     Active Substance: BROMELAINS
     Dosage: 1 DF 1X/DAY, 0-0-1
     Dates: start: 20130206, end: 20130224
  13. NOVAMINSULFON ^LICHTENSTEIN^ [Suspect]
     Active Substance: METAMIZOLE
     Dosage: UNK
     Dates: start: 20130205, end: 20130224
  14. VOLTAREN RESINAT [Suspect]
     Active Substance: DICLOFENAC
     Indication: INFLAMMATION
  15. PANTOPRAZOL DURA 40 MG [Suspect]
     Active Substance: PANTOPRAZOLE SODIUM
     Dosage: 40 MG, 1X/DAY, 0-0-1
     Dates: start: 20130205, end: 20130224

REACTIONS (21)
  - Arthropathy [Unknown]
  - Pancreatitis [Not Recovered/Not Resolved]
  - Pneumonia [Unknown]
  - Pulmonary oedema [Recovered/Resolved]
  - Faecaloma [Recovering/Resolving]
  - Hypokalaemia [Unknown]
  - Helicobacter test positive [Unknown]
  - Faeces discoloured [Recovering/Resolving]
  - Respiratory failure [Not Recovered/Not Resolved]
  - Sepsis [Not Recovered/Not Resolved]
  - Acute hepatic failure [Recovered/Resolved]
  - Bundle branch block right [Unknown]
  - Folate deficiency [Unknown]
  - Constipation [Recovering/Resolving]
  - Ascites [Unknown]
  - Cholecystitis [Not Recovered/Not Resolved]
  - Drug-induced liver injury [Recovered/Resolved]
  - Coma [Recovered/Resolved]
  - Polychondritis [Unknown]
  - Generalised oedema [Unknown]
  - Pleural effusion [Recovered/Resolved]

NARRATIVE: CASE EVENT DATE: 20120712
